FAERS Safety Report 10195685 (Version 1)
Quarter: 2014Q2

REPORT INFORMATION
  Report Type: Spontaneous
  Country: GB (occurrence: GB)
  Receive Date: 20140527
  Receipt Date: 20140527
  Transmission Date: 20141212
  Serious: Yes (Life-Threatening, Hospitalization)
  Sender: FDA-Public Use
  Company Number: GB-ACCORD-023824

PATIENT
  Age: 67 Year
  Sex: Male
  Weight: 75.29 kg

DRUGS (8)
  1. TRAMADOL/TRAMADOL HYDROCHLORIDE [Suspect]
     Indication: BACK PAIN
     Route: 048
     Dates: start: 20140428, end: 20140430
  2. CO-CODAMOL [Concomitant]
     Indication: BACK PAIN
  3. WARFARIN [Concomitant]
     Indication: ATRIAL FIBRILLATION
  4. SIMVASTATIN [Concomitant]
     Dosage: AT NIGHT. REGULAR MEDICATION
  5. SPIRONOLACTONE [Concomitant]
     Dosage: REGULAR REPEAT
  6. ASPIRIN [Concomitant]
     Dosage: REGULAR REPEAT
  7. RAMIPRIL [Concomitant]
     Dosage: REGULAR REPEAT.
  8. BISOPROLOL [Concomitant]
     Dosage: REGULAR MEDICATION

REACTIONS (2)
  - Epistaxis [Not Recovered/Not Resolved]
  - International normalised ratio increased [Recovered/Resolved]
